FAERS Safety Report 9452835 (Version 18)
Quarter: 2021Q4

REPORT INFORMATION
  Report Type: Spontaneous
  Country: GB (occurrence: GB)
  Receive Date: 20130812
  Receipt Date: 20211228
  Transmission Date: 20220303
  Serious: Yes (Other)
  Sender: FDA-Public Use
  Company Number: None

PATIENT
  Age: 42 Year
  Sex: Female
  Weight: 74 kg

DRUGS (31)
  1. PREZISTA [Suspect]
     Active Substance: DARUNAVIR ETHANOLATE
     Indication: HIV infection
     Dosage: 2/1 DAYS
     Route: 048
     Dates: start: 20081023
  2. INTELENCE [Suspect]
     Active Substance: ETRAVIRINE
     Indication: HIV infection
     Route: 048
     Dates: start: 20081023, end: 20081023
  3. INTELENCE [Suspect]
     Active Substance: ETRAVIRINE
     Route: 048
     Dates: start: 20081023
  4. INTELENCE [Suspect]
     Active Substance: ETRAVIRINE
     Route: 048
  5. APTIVUS [Suspect]
     Active Substance: TIPRANAVIR
     Indication: HIV infection
     Dosage: FOR 2 YEARS
     Route: 048
     Dates: start: 20060905, end: 20081023
  6. APTIVUS [Suspect]
     Active Substance: TIPRANAVIR
     Route: 048
     Dates: start: 20081023
  7. ISENTRESS [Suspect]
     Active Substance: RALTEGRAVIR POTASSIUM
     Indication: HIV infection
     Dosage: FOR 2 YEARS AND 4 MONTHS
     Route: 048
  8. ISENTRESS [Suspect]
     Active Substance: RALTEGRAVIR POTASSIUM
     Route: 048
     Dates: start: 20081023, end: 20090221
  9. NORVIR [Suspect]
     Active Substance: RITONAVIR
     Indication: HIV infection
     Dosage: FOR 2 YEARS
     Route: 048
     Dates: start: 20060905, end: 20081022
  10. NORVIR [Suspect]
     Active Substance: RITONAVIR
     Dosage: FOR 2 YEARS
     Route: 048
     Dates: start: 20081023
  11. NORVIR [Suspect]
     Active Substance: RITONAVIR
     Route: 048
  12. NORVIR [Suspect]
     Active Substance: RITONAVIR
     Route: 048
  13. TRUVADA [Suspect]
     Active Substance: EMTRICITABINE\TENOFOVIR DISOPROXIL FUMARATE
     Indication: HIV infection
     Route: 048
     Dates: start: 20070605, end: 2007
  14. TRUVADA [Suspect]
     Active Substance: EMTRICITABINE\TENOFOVIR DISOPROXIL FUMARATE
     Dosage: 18 MONTHS
     Route: 048
     Dates: start: 20070905, end: 20081023
  15. TRUVADA [Suspect]
     Active Substance: EMTRICITABINE\TENOFOVIR DISOPROXIL FUMARATE
     Dosage: 18 MONTHS
     Route: 048
     Dates: start: 20070905, end: 20081023
  16. ZIDOVUDINE [Suspect]
     Active Substance: ZIDOVUDINE
     Indication: Antiviral prophylaxis
     Route: 048
  17. ZIDOVUDINE [Suspect]
     Active Substance: ZIDOVUDINE
     Route: 048
  18. ZIDOVUDINE [Concomitant]
     Active Substance: ZIDOVUDINE
     Route: 065
  19. ENFUVIRTIDE [Concomitant]
     Active Substance: ENFUVIRTIDE
     Route: 042
  20. ENFUVIRTIDE [Concomitant]
     Active Substance: ENFUVIRTIDE
     Route: 042
  21. PREDNISOLONE [Concomitant]
     Active Substance: PREDNISOLONE
     Indication: Product used for unknown indication
     Route: 048
  22. NOVORAPID [Concomitant]
     Active Substance: INSULIN ASPART
     Indication: Gestational diabetes
     Route: 058
  23. NOVORAPID [Concomitant]
     Active Substance: INSULIN ASPART
     Dosage: 4 IU
     Route: 058
     Dates: end: 20091022
  24. INSULIN NOS [Concomitant]
     Active Substance: INSULIN NOS
     Indication: Gestational diabetes
     Route: 065
  25. INSULIN NOS [Concomitant]
     Active Substance: INSULIN NOS
     Route: 065
  26. OXYGEN [Concomitant]
     Active Substance: OXYGEN
     Indication: Product used for unknown indication
     Route: 055
  27. NITROUS OXIDE [Concomitant]
     Active Substance: NITROUS OXIDE
     Route: 042
  28. NITROUS OXIDE [Concomitant]
     Active Substance: NITROUS OXIDE
     Route: 042
  29. TIPRANAVIR [Concomitant]
     Active Substance: TIPRANAVIR
     Route: 065
     Dates: start: 20070605
  30. TIPRANAVIR [Concomitant]
     Active Substance: TIPRANAVIR
     Route: 065
     Dates: start: 20081023
  31. ZIDOVUDINE [Concomitant]
     Active Substance: ZIDOVUDINE
     Route: 042

REACTIONS (6)
  - Premature labour [Recovered/Resolved]
  - Lipodystrophy acquired [Recovered/Resolved]
  - Drug-induced liver injury [Unknown]
  - Alanine aminotransferase abnormal [Recovered/Resolved]
  - Exposure during pregnancy [Recovered/Resolved]
  - Aspartate aminotransferase abnormal [Recovered/Resolved]

NARRATIVE: CASE EVENT DATE: 20090221
